FAERS Safety Report 15798955 (Version 1)
Quarter: 2019Q1

REPORT INFORMATION
  Report Type: Spontaneous
  Country: US (occurrence: US)
  Receive Date: 20190108
  Receipt Date: 20190108
  Transmission Date: 20190417
  Serious: Yes (Hospitalization)
  Sender: FDA-Public Use
  Company Number: None

PATIENT
  Sex: Male

DRUGS (10)
  1. MAPAP [Concomitant]
     Active Substance: ACETAMINOPHEN
  2. METHOTREXATE. [Concomitant]
     Active Substance: METHOTREXATE
  3. PREDNISONE. [Concomitant]
     Active Substance: PREDNISONE
  4. FOLIC ACID. [Concomitant]
     Active Substance: FOLIC ACID
  5. METFORMIN [Concomitant]
     Active Substance: METFORMIN HYDROCHLORIDE
  6. HUMIRA [Suspect]
     Active Substance: ADALIMUMAB
     Indication: RHEUMATOID ARTHRITIS
     Dosage: ?          OTHER FREQUENCY:Q14D;?
     Route: 058
     Dates: start: 20170216
  7. ATORVASTATIN [Concomitant]
     Active Substance: ATORVASTATIN
  8. IBU [Concomitant]
     Active Substance: IBUPROFEN
  9. ALLOPURINOL. [Concomitant]
     Active Substance: ALLOPURINOL
  10. CLOTRIMAZOLE. [Concomitant]
     Active Substance: CLOTRIMAZOLE

REACTIONS (1)
  - Product dose omission [None]
